FAERS Safety Report 4692779-9 (Version None)
Quarter: 2005Q2

REPORT INFORMATION
  Report Type: 
  Country: None (occurrence: None)
  Receive Date: 20050617
  Receipt Date: 20050311
  Transmission Date: 20051028
  Serious: Yes (Hospitalization)
  Sender: FDA-Public Use
  Company Number: US-MERCK-0503USA02686

PATIENT
  Age: 45 Year
  Sex: Male
  Weight: 82 kg

DRUGS (5)
  1. VIOXX [Suspect]
     Indication: ROTATOR CUFF SYNDROME
     Route: 048
     Dates: start: 20020601, end: 20031217
  2. VIOXX [Suspect]
     Route: 048
     Dates: start: 20021201, end: 20031201
  3. PREDNISONE [Concomitant]
     Indication: NASAL POLYPS
     Route: 065
     Dates: start: 20031101
  4. SINGULAIR [Concomitant]
     Route: 065
  5. FLONASE [Concomitant]
     Route: 065

REACTIONS (4)
  - ANGINA UNSTABLE [None]
  - DEPRESSION POSTOPERATIVE [None]
  - MENTAL DISORDER [None]
  - MYOCARDIAL INFARCTION [None]
